FAERS Safety Report 7664703-8 (Version None)
Quarter: 2011Q3

REPORT INFORMATION
  Report Type: 
  Country: None (occurrence: None)
  Receive Date: 20110806
  Receipt Date: 20110125
  Transmission Date: 20111222
  Serious: No
  Sender: FDA-Public Use
  Company Number: US-ABBOTT-11P-163-0700337-00

PATIENT
  Sex: Female
  Weight: 70.824 kg

DRUGS (3)
  1. NIASPAN [Suspect]
     Indication: LOW DENSITY LIPOPROTEIN INCREASED
     Dosage: AT BEDTIME
  2. NIASPAN [Suspect]
     Indication: CORONARY ARTERY DISEASE
  3. TEMAZEPAM [Concomitant]
     Indication: PRODUCT USED FOR UNKNOWN INDICATION

REACTIONS (6)
  - FLUSHING [None]
  - PARAESTHESIA [None]
  - FEELING HOT [None]
  - TENSION HEADACHE [None]
  - PRURITUS [None]
  - CHEST DISCOMFORT [None]
